FAERS Safety Report 7949204-1 (Version None)
Quarter: 2011Q4

REPORT INFORMATION
  Report Type: 
  Country: None (occurrence: None)
  Receive Date: 20111130
  Receipt Date: 20111118
  Transmission Date: 20120403
  Serious: Yes (Hospitalization, Other)
  Sender: FDA-Public Use
  Company Number: PHHY2011US101846

PATIENT
  Age: 3 Year
  Sex: Male

DRUGS (1)
  1. FLUOXETINE [Suspect]
     Dosage: 20 MG, 12 TABLETS

REACTIONS (13)
  - VOMITING [None]
  - APHASIA [None]
  - TACHYCARDIA [None]
  - MYDRIASIS [None]
  - INAPPROPRIATE ANTIDIURETIC HORMONE SECRETION [None]
  - HALLUCINATION [None]
  - TREMOR [None]
  - HYPERTENSION [None]
  - CONVULSION [None]
  - HYPERHIDROSIS [None]
  - MUSCLE RIGIDITY [None]
  - BRAIN OEDEMA [None]
  - HAEMODYNAMIC INSTABILITY [None]
